FAERS Safety Report 17708406 (Version 22)
Quarter: 2022Q4

REPORT INFORMATION
  Report Type: Report from Study
  Country: AR (occurrence: AR)
  Receive Date: 20200426
  Receipt Date: 20221003
  Transmission Date: 20230113
  Serious: Yes (Life-Threatening, Hospitalization, Other)
  Sender: FDA-Public Use
  Company Number: PHHY2019AR173414

PATIENT
  Age: 82 Year
  Sex: Female

DRUGS (4)
  1. KISQALI [Suspect]
     Active Substance: RIBOCICLIB
     Indication: Breast cancer metastatic
     Dosage: 200 MG, TID
     Route: 048
     Dates: start: 20190704
  2. KISQALI [Suspect]
     Active Substance: RIBOCICLIB
     Dosage: 600 MG, QD
     Route: 048
     Dates: start: 20190704
  3. KISQALI [Suspect]
     Active Substance: RIBOCICLIB
     Dosage: 600 MG, QD
     Route: 048
     Dates: start: 20190904
  4. OMEPRAZOLE [Concomitant]
     Active Substance: OMEPRAZOLE
     Indication: Product used for unknown indication
     Dosage: UNK
     Route: 065

REACTIONS (54)
  - Dyspnoea [Unknown]
  - Pneumonia [Unknown]
  - Hip fracture [Unknown]
  - Anaemia [Unknown]
  - Loss of consciousness [Unknown]
  - Haemoglobin decreased [Unknown]
  - Tremor [Unknown]
  - Lung disorder [Unknown]
  - Muscular weakness [Unknown]
  - Malaise [Unknown]
  - Depressed mood [Unknown]
  - Feeling abnormal [Unknown]
  - Movement disorder [Unknown]
  - White blood cell count decreased [Recovered/Resolved]
  - Decreased appetite [Unknown]
  - Vomiting [Unknown]
  - Dizziness [Unknown]
  - Diarrhoea [Unknown]
  - White blood cell count decreased [Unknown]
  - Dysgeusia [Unknown]
  - Ulcer [Unknown]
  - Decreased immune responsiveness [Unknown]
  - Hypophagia [Unknown]
  - Skin injury [Unknown]
  - Skin atrophy [Unknown]
  - Coagulopathy [Unknown]
  - Skin ulcer [Unknown]
  - Hiatus hernia [Unknown]
  - Contusion [Unknown]
  - Sensitive skin [Unknown]
  - Secretion discharge [Unknown]
  - Rhinorrhoea [Unknown]
  - Weight decreased [Unknown]
  - Decubitus ulcer [Unknown]
  - Speech disorder [Unknown]
  - Nasopharyngitis [Unknown]
  - Platelet count decreased [Recovered/Resolved]
  - Platelet count decreased [Unknown]
  - Asthenia [Unknown]
  - Abdominal pain upper [Not Recovered/Not Resolved]
  - Bronchitis [Not Recovered/Not Resolved]
  - Cough [Unknown]
  - Nausea [Unknown]
  - Urinary tract infection [Unknown]
  - Pyrexia [Unknown]
  - Rash [Unknown]
  - Gait disturbance [Unknown]
  - Thermal burn [Unknown]
  - Oxygen saturation decreased [Unknown]
  - Fall [Unknown]
  - Fracture [Unknown]
  - Therapy non-responder [Unknown]
  - Blood potassium decreased [Unknown]
  - Red blood cell count decreased [Unknown]

NARRATIVE: CASE EVENT DATE: 20190926
